FAERS Safety Report 10087932 (Version 3)
Quarter: 2014Q2

REPORT INFORMATION
  Report Type: Report from Study
  Country: FR (occurrence: FR)
  Receive Date: 20140419
  Receipt Date: 20140627
  Transmission Date: 20141212
  Serious: Yes (Hospitalization)
  Sender: FDA-Public Use
  Company Number: FR-ROCHE-1385174

PATIENT
  Age: 51 Year
  Sex: Female

DRUGS (33)
  1. RANIBIZUMAB [Suspect]
     Indication: PSEUDOXANTHOMA ELASTICUM
     Route: 050
     Dates: start: 20110601
  2. RANIBIZUMAB [Suspect]
     Route: 050
     Dates: start: 20110919
  3. RANIBIZUMAB [Suspect]
     Route: 050
     Dates: start: 20111026
  4. RANIBIZUMAB [Suspect]
     Route: 065
     Dates: start: 20111026
  5. RANIBIZUMAB [Suspect]
     Route: 050
     Dates: start: 20111128
  6. RANIBIZUMAB [Suspect]
     Route: 050
     Dates: start: 20111228
  7. RANIBIZUMAB [Suspect]
     Route: 050
     Dates: start: 20120130
  8. RANIBIZUMAB [Suspect]
     Route: 050
     Dates: start: 20120305
  9. RANIBIZUMAB [Suspect]
     Route: 050
     Dates: start: 20120406
  10. RANIBIZUMAB [Suspect]
     Route: 050
     Dates: start: 20120507
  11. RANIBIZUMAB [Suspect]
     Route: 050
     Dates: start: 20120618
  12. RANIBIZUMAB [Suspect]
     Route: 050
     Dates: start: 20120720
  13. RANIBIZUMAB [Suspect]
     Route: 050
     Dates: start: 20120820
  14. RANIBIZUMAB [Suspect]
     Route: 050
     Dates: start: 20120917
  15. RANIBIZUMAB [Suspect]
     Route: 050
     Dates: start: 20121112
  16. RANIBIZUMAB [Suspect]
     Route: 050
     Dates: start: 20121217
  17. RANIBIZUMAB [Suspect]
     Route: 050
     Dates: start: 20130121
  18. RANIBIZUMAB [Suspect]
     Route: 050
     Dates: start: 20130418
  19. RANIBIZUMAB [Suspect]
     Route: 050
     Dates: start: 20130606
  20. RANIBIZUMAB [Suspect]
     Route: 050
     Dates: start: 20110711
  21. RANIBIZUMAB [Suspect]
     Route: 050
     Dates: start: 20110713
  22. RANIBIZUMAB [Suspect]
     Route: 050
     Dates: start: 20110816
  23. RANIBIZUMAB [Suspect]
     Route: 050
     Dates: start: 20110818
  24. RANIBIZUMAB [Suspect]
     Route: 050
     Dates: start: 20130403
  25. RANIBIZUMAB [Suspect]
     Route: 050
     Dates: start: 20130718
  26. RANIBIZUMAB [Suspect]
     Route: 050
     Dates: start: 20130912
  27. RANIBIZUMAB [Suspect]
     Route: 050
     Dates: start: 20131030
  28. RANIBIZUMAB [Suspect]
     Route: 050
     Dates: start: 20131212
  29. RANIBIZUMAB [Suspect]
     Route: 050
     Dates: start: 20140131
  30. MICARDIS [Concomitant]
     Dosage: 80/12.5 MG
     Route: 065
     Dates: start: 2011, end: 201304
  31. CRESTOR [Concomitant]
  32. KARDEGIC [Concomitant]
  33. ZYMAD [Concomitant]

REACTIONS (7)
  - Ischaemic cerebral infarction [Recovered/Resolved]
  - Back pain [Unknown]
  - Musculoskeletal pain [Unknown]
  - Paraesthesia [Unknown]
  - Gait disturbance [Unknown]
  - Eyelid oedema [Recovered/Resolved]
  - Balance disorder [Unknown]
